FAERS Safety Report 22400182 (Version 1)
Quarter: 2023Q2

REPORT INFORMATION
  Report Type: Spontaneous
  Country: US (occurrence: None)
  Receive Date: 20230601
  Receipt Date: 20230601
  Transmission Date: 20230721
  Serious: Yes (unspecified)
  Sender: FDA-Public Use
  Company Number: None

PATIENT
  Age: 41 Year
  Sex: Female
  Weight: 75.6 kg

DRUGS (2)
  1. ADDERALL [Suspect]
     Active Substance: AMPHETAMINE ASPARTATE\AMPHETAMINE SULFATE\DEXTROAMPHETAMINE SACCHARATE\DEXTROAMPHETAMINE SULFATE
     Indication: Attention deficit hyperactivity disorder
     Dosage: OTHER QUANTITY : 1 TABLET(S);?OTHER FREQUENCY : 6 TIMES A DAY;?
     Route: 048
     Dates: start: 20100116, end: 20220315
  2. VYVANSE [Suspect]
     Active Substance: LISDEXAMFETAMINE DIMESYLATE

REACTIONS (12)
  - Therapeutic product effect decreased [None]
  - Therapy cessation [None]
  - Feeling abnormal [None]
  - Apathy [None]
  - Depressed mood [None]
  - Somnolence [None]
  - Weight increased [None]
  - Staring [None]
  - Central nervous system function test abnormal [None]
  - Psychiatric symptom [None]
  - Depression [None]
  - Movement disorder [None]

NARRATIVE: CASE EVENT DATE: 20220320
